FAERS Safety Report 9306865 (Version 1)
Quarter: 2013Q2

REPORT INFORMATION
  Report Type: Spontaneous
  Country: US (occurrence: US)
  Receive Date: 20130523
  Receipt Date: 20130523
  Transmission Date: 20140414
  Serious: Yes (Other)
  Sender: FDA-Public Use
  Company Number: PHHY2013US050586

PATIENT
  Sex: Male

DRUGS (1)
  1. ACETYLSALICYLIC ACID [Suspect]
     Dosage: 2 DF (1 OR 2 PILLS)
     Route: 048

REACTIONS (4)
  - Dehydration [Recovered/Resolved]
  - Heat stroke [Recovered/Resolved]
  - Migraine [Not Recovered/Not Resolved]
  - Abdominal pain upper [Recovered/Resolved]
